FAERS Safety Report 4760012-5 (Version None)
Quarter: 2005Q3

REPORT INFORMATION
  Report Type: 
  Country: None (occurrence: None)
  Receive Date: 20050831
  Receipt Date: 20050818
  Transmission Date: 20060218
  Serious: Yes (Other)
  Sender: FDA-Public Use
  Company Number: 2005117974

PATIENT
  Age: 63 Year
  Sex: Male
  Weight: 95.2554 kg

DRUGS (6)
  1. TIKOSYN [Suspect]
     Indication: ATRIAL FIBRILLATION
     Dosage: 1 MG (0.5 MG, 2 IN 1 D),
     Dates: start: 20030101
  2. NEURONTIN [Concomitant]
  3. PARAFON FORTE (CHLORZOXAZONE, PARACETAMOL) [Concomitant]
  4. FLOMAX ^BOEHRINGER INGELHEIM^ (TAMSULOSIN HYDROCHLORIDE) [Concomitant]
  5. LIPITOR [Concomitant]
  6. TRAMADOL HCL [Concomitant]

REACTIONS (3)
  - GASTROOESOPHAGEAL REFLUX DISEASE [None]
  - HYPERTONIC BLADDER [None]
  - PROSTATIC OPERATION [None]
